FAERS Safety Report 14920239 (Version 1)
Quarter: 2018Q2

REPORT INFORMATION
  Report Type: Spontaneous
  Country: TR (occurrence: TR)
  Receive Date: 20180521
  Receipt Date: 20180521
  Transmission Date: 20180711
  Serious: Yes (Other)
  Sender: FDA-Public Use
  Company Number: TR-BAYER-2018-092794

PATIENT
  Age: 23 Year
  Sex: Female
  Weight: 62 kg

DRUGS (1)
  1. YASMIN [Suspect]
     Active Substance: DROSPIRENONE\ETHINYL ESTRADIOL
     Indication: ORAL CONTRACEPTION
     Dosage: UNK
     Route: 048
     Dates: start: 201408, end: 2014

REACTIONS (3)
  - Amniotic fluid volume decreased [None]
  - Drug ineffective [None]
  - Pregnancy on oral contraceptive [Recovered/Resolved]

NARRATIVE: CASE EVENT DATE: 2014
